FAERS Safety Report 8567064-5 (Version None)
Quarter: 2012Q3

REPORT INFORMATION
  Report Type: 
  Country: None (occurrence: None)
  Receive Date: 20120803
  Receipt Date: 20111202
  Transmission Date: 20120928
  Serious: No
  Sender: FDA-Public Use
  Company Number: US-ABBOTT-11P-163-0875600-00

PATIENT
  Sex: Male
  Weight: 95.34 kg

DRUGS (31)
  1. ASPIRIN [Concomitant]
     Indication: PRODUCT USED FOR UNKNOWN INDICATION
  2. COREG [Concomitant]
     Indication: CARDIAC DISORDER
  3. AMLA FRUIT [Concomitant]
     Indication: PRODUCT USED FOR UNKNOWN INDICATION
  4. GLYSINE PROPYNOL L-CARNITINE HCI [Concomitant]
     Indication: PRODUCT USED FOR UNKNOWN INDICATION
  5. JUICE PLUS VINEYARD BLEND [Concomitant]
     Indication: SUPPLEMENTATION THERAPY
  6. XANAX [Concomitant]
     Indication: ANXIETY
  7. KRILL OIL [Concomitant]
     Indication: PRODUCT USED FOR UNKNOWN INDICATION
  8. ACAI BERRY [Concomitant]
     Indication: SUPPLEMENTATION THERAPY
  9. FOLIC ACID [Concomitant]
     Indication: CARDIAC DISORDER
  10. NIASPAN [Suspect]
     Indication: HIGH DENSITY LIPOPROTEIN DECREASED
     Dates: start: 20111107
  11. FISH OIL [Concomitant]
     Indication: BLOOD CHOLESTEROL INCREASED
  12. AMOXICILLIN [Concomitant]
     Indication: DENTAL DISORDER PROPHYLAXIS
     Dosage: AS NEEDED
  13. ALLEGRA [Concomitant]
     Indication: HYPERSENSITIVITY
  14. SLO-MAG [Concomitant]
     Indication: PRODUCT USED FOR UNKNOWN INDICATION
  15. HIGHLY ACTIVE TART CHERRY [Concomitant]
     Indication: SUPPLEMENTATION THERAPY
  16. JUICE PLUS GARDEN BLEND [Concomitant]
     Indication: SUPPLEMENTATION THERAPY
  17. UBIQUINOL COQ10 [Concomitant]
     Indication: SUPPLEMENTATION THERAPY
  18. NITROGLYCERIN [Concomitant]
     Indication: CHEST PAIN
  19. MICARDIS HCT [Concomitant]
     Indication: CARDIAC DISORDER
  20. SUPER STRESS B COMPLEX WITH VITAMIN C [Concomitant]
     Indication: SUPPLEMENTATION THERAPY
  21. VITAMIN B3 [Concomitant]
     Indication: PRODUCT USED FOR UNKNOWN INDICATION
  22. ARGININE AKG [Concomitant]
     Indication: PRODUCT USED FOR UNKNOWN INDICATION
  23. JUICE PLUS ORCHARD BLEND [Concomitant]
     Indication: SUPPLEMENTATION THERAPY
  24. L-CARNITINE [Concomitant]
     Indication: SUPPLEMENTATION THERAPY
  25. TYLENOL ARTHRITIS [Concomitant]
     Indication: ARTHRITIS
  26. GREEN SELECT [Concomitant]
     Indication: SUPPLEMENTATION THERAPY
  27. MELATONIN [Concomitant]
     Indication: SLEEP DISORDER
     Dosage: AT BEDTIME
  28. ALPHA LIPOIC ACID [Concomitant]
     Indication: PRODUCT USED FOR UNKNOWN INDICATION
  29. MOBIC [Concomitant]
     Indication: SCIATICA
  30. CALCIUM CARBONATE [Concomitant]
     Indication: MINERAL SUPPLEMENTATION
  31. FRUIT FLOW [Concomitant]
     Indication: SUPPLEMENTATION THERAPY

REACTIONS (1)
  - BACK PAIN [None]
